FAERS Safety Report 10186484 (Version 3)
Quarter: 2014Q2

REPORT INFORMATION
  Report Type: Spontaneous
  Country: US (occurrence: US)
  Receive Date: 20140521
  Receipt Date: 20140529
  Transmission Date: 20141212
  Serious: Yes (Other)
  Sender: FDA-Public Use
  Company Number: US-PFIZER INC-A125006

PATIENT
  Age: 68 Year
  Sex: Female

DRUGS (6)
  1. CORDARONE [Suspect]
     Indication: ATRIAL FIBRILLATION
     Dosage: 200 MG, DAILY
     Route: 048
     Dates: start: 2000
  2. AZITHROMYCIN [Interacting]
     Indication: LOBAR PNEUMONIA
     Dosage: 500 MG, DAILY
     Route: 048
  3. AZITHROMYCIN [Interacting]
     Dosage: 250 MG, DAILY
     Route: 048
  4. FUROSEMIDE [Concomitant]
     Dosage: 40 MG, DAILY
     Route: 048
  5. ENALAPRIL [Concomitant]
     Indication: SYSTOLIC DYSFUNCTION
     Dosage: 7.5 MG, 2X/DAY
     Route: 048
  6. ASPIRIN [Concomitant]
     Dosage: 325 MG, DAILY
     Route: 048

REACTIONS (3)
  - Drug interaction [Unknown]
  - Electrocardiogram QT prolonged [Recovered/Resolved]
  - Sinus bradycardia [Recovered/Resolved]
